FAERS Safety Report 7423736-7 (Version None)
Quarter: 2011Q2

REPORT INFORMATION
  Report Type: 
  Country: None (occurrence: None)
  Receive Date: 20110411
  Receipt Date: 20110329
  Transmission Date: 20111010
  Serious: Yes (Death, Other)
  Sender: FDA-Public Use
  Company Number: FK201100610

PATIENT
  Age: 67 Year
  Sex: Male

DRUGS (5)
  1. VANCOMYCIN HYDROCHLORIDE [Suspect]
     Indication: ANTIBIOTIC THERAPY
     Dosage: 5 DOSES GIVEN AT 24 TO 36 HOUR INTERVALS,
  2. ACETAMINOPHEN [Concomitant]
  3. NORTRIPTYLINE (NORTRIPTYLINE) [Concomitant]
  4. ALLOPURINOL [Concomitant]
  5. INSULIN (INSULIN) [Concomitant]

REACTIONS (6)
  - THROMBOCYTOPENIA [None]
  - PETECHIAE [None]
  - MULTI-ORGAN FAILURE [None]
  - HAEMORRHAGE [None]
  - MUCOSAL HAEMORRHAGE [None]
  - HAEMOGLOBIN DECREASED [None]
